FAERS Safety Report 4389110-5 (Version None)
Quarter: 2004Q2

REPORT INFORMATION
  Report Type: 
  Country: None (occurrence: None)
  Receive Date: 20040628
  Receipt Date: 20040622
  Transmission Date: 20050107
  Serious: Yes (Other)
  Sender: FDA-Public Use
  Company Number: 206667

PATIENT
  Age: 25 Year
  Sex: Male
  Weight: 115.6 kg

DRUGS (13)
  1. XOLAIR [Suspect]
     Indication: ASTHMA
     Dosage: 375 MG, Q2W
     Dates: start: 20031118, end: 20040407
  2. COMBIVENT (IPRATROPIUM BROMIDE, ALBUTEROL, ALBUTEROL SULFATE) [Concomitant]
  3. ATROVENT [Concomitant]
  4. ADVAIR DISKUS [Concomitant]
  5. CLONAZEPAM [Concomitant]
  6. LEXAPRO [Concomitant]
  7. ATENOLOL [Concomitant]
  8. FUROSEMIDE [Concomitant]
  9. HYDROCODONE BITARTRATE [Concomitant]
  10. NASACORT AQ (TRIAMCINOLONE ACETONIDE) [Concomitant]
  11. CLARINEX [Concomitant]
  12. LITHIUM (LITHIUM NOS) [Concomitant]
  13. RISPERDAL [Concomitant]

REACTIONS (1)
  - ANAPHYLACTIC REACTION [None]
